FAERS Safety Report 14224394 (Version 2)
Quarter: 2018Q1

REPORT INFORMATION
  Report Type: Report from Study
  Country: US (occurrence: US)
  Receive Date: 20171126
  Receipt Date: 20180122
  Transmission Date: 20180508
  Serious: No
  Sender: FDA-Public Use
  Company Number: US-BIOMARINAP-US-2017-116083

PATIENT
  Sex: Female

DRUGS (1)
  1. KUVAN [Suspect]
     Active Substance: SAPROPTERIN DIHYDROCHLORIDE
     Indication: PHENYLKETONURIA
     Dosage: 20 MG/KG, QD
     Route: 048
     Dates: start: 20090114

REACTIONS (1)
  - Maternal exposure during pregnancy [Unknown]
